FAERS Safety Report 8458165-0 (Version None)
Quarter: 2012Q2

REPORT INFORMATION
  Report Type: 
  Country: None (occurrence: None)
  Receive Date: 20120323
  Receipt Date: 20111201
  Transmission Date: 20120825
  Serious: Yes (Hospitalization, Other)
  Sender: FDA-Public Use
  Company Number: 163-21880-11102961

PATIENT
  Age: 64 Year
  Sex: Female

DRUGS (9)
  1. HUMULIN 50/50 (NOVOLIN 20/80) [Concomitant]
  2. LASIX [Concomitant]
  3. ENALAPRIL MALEATE [Concomitant]
  4. BUPROPION HCL (BUPROPION HYDROCHLORIDE) [Concomitant]
  5. KLOR-CON M10 (POTASSIUM CHLORIDE) [Concomitant]
  6. LORAZEPAM [Concomitant]
  7. REVLIMID [Suspect]
     Indication: MULTIPLE MYELOMA
     Dosage: 25 MG, 1 IN 1 D, PO
     Route: 048
     Dates: start: 20110830
  8. FUROSEMIDE [Concomitant]
  9. ACYCLOVIR [Concomitant]

REACTIONS (2)
  - RASH [None]
  - DEEP VEIN THROMBOSIS [None]
